FAERS Safety Report 9105065 (Version 1)
Quarter: 2013Q1

REPORT INFORMATION
  Report Type: Report from Study
  Country: US (occurrence: US)
  Receive Date: 20130220
  Receipt Date: 20130220
  Transmission Date: 20140127
  Serious: Yes (Other)
  Sender: FDA-Public Use
  Company Number: US-CELGENEUS-163-21880-13021575

PATIENT
  Sex: Male

DRUGS (2)
  1. REVLIMID [Suspect]
     Indication: PROSTATE CANCER
     Route: 048
  2. KETOCONAZOLE [Suspect]
     Indication: PROSTATE CANCER
     Route: 065

REACTIONS (2)
  - International normalised ratio increased [Unknown]
  - Haemoglobin decreased [Unknown]
